FAERS Safety Report 4639393-9 (Version None)
Quarter: 2005Q2

REPORT INFORMATION
  Report Type: 
  Country: None (occurrence: None)
  Receive Date: 20050418
  Receipt Date: 20050329
  Transmission Date: 20051028
  Serious: Yes (Hospitalization)
  Sender: FDA-Public Use
  Company Number: 1780

PATIENT
  Age: 41 Year
  Sex: Female

DRUGS (7)
  1. AVINZA [Suspect]
     Indication: BACK PAIN
     Dosage: 60 MG QD PO
     Route: 048
     Dates: start: 20050317, end: 20050323
  2. BUSULFAN [Concomitant]
  3. CALCIUM GLUCONATE [Concomitant]
  4. DIAZEPAM [Concomitant]
  5. PHENYTOIN [Concomitant]
  6. RISEDRONATE SODIUM [Concomitant]
  7. TOPIRAMATE [Concomitant]

REACTIONS (10)
  - ANTICONVULSANT DRUG LEVEL BELOW THERAPEUTIC [None]
  - CONVULSION [None]
  - DRUG WITHDRAWAL SYNDROME [None]
  - EPILEPSY [None]
  - INCORRECT DOSE ADMINISTERED [None]
  - LOSS OF CONSCIOUSNESS [None]
  - OVERDOSE [None]
  - PRURITUS [None]
  - SCRATCH [None]
  - SKIN DISORDER [None]
